FAERS Safety Report 4748073-0 (Version None)
Quarter: 2005Q3

REPORT INFORMATION
  Report Type: 
  Country: None (occurrence: None)
  Receive Date: 20050818
  Receipt Date: 20050813
  Transmission Date: 20060218
  Serious: Yes (Hospitalization)
  Sender: FDA-Public Use
  Company Number: GB-2005-015044

PATIENT
  Age: 40 Year
  Sex: Female

DRUGS (11)
  1. MELPHALAN [Suspect]
     Route: 065
     Dates: start: 20031001, end: 20031001
  2. MABCAMPATH [Suspect]
     Route: 065
     Dates: start: 20031001, end: 20031001
  3. FLUDARABINE PHOSPHATE [Suspect]
     Route: 065
     Dates: start: 20031001, end: 20031001
  4. ACYCLOVIR [Concomitant]
     Indication: PROPHYLAXIS
     Route: 065
     Dates: start: 20031001, end: 20031001
  5. ITRACONAZOLE [Concomitant]
     Indication: PROPHYLAXIS
     Route: 065
     Dates: start: 20031001, end: 20031001
  6. PENTAMIDINE [Concomitant]
     Indication: PROPHYLAXIS
     Route: 065
     Dates: start: 20031001, end: 20031001
  7. CO-TRIMOXAZOLE [Concomitant]
  8. FLUDARABINE PHOSPHATE [Concomitant]
     Dates: start: 20000101
  9. CYCLOPHOSPHAMIDE [Concomitant]
     Dates: start: 20000101
  10. RITUXIMAB [Concomitant]
     Dates: start: 20000101
  11. ALEMTUZUMAB [Concomitant]
     Dates: start: 20020101

REACTIONS (3)
  - CONFUSIONAL STATE [None]
  - NOCARDIOSIS [None]
  - PYREXIA [None]
